FAERS Safety Report 12748779 (Version 1)
Quarter: 2016Q3

REPORT INFORMATION
  Report Type: Spontaneous
  Country: ES (occurrence: ES)
  Receive Date: 20160915
  Receipt Date: 20160915
  Transmission Date: 20161109
  Serious: Yes (Other)
  Sender: FDA-Public Use
  Company Number: ES-ARBOR PHARMACEUTICALS, LLC-ES-2016ARB001242

PATIENT
  Age: 37 Year
  Sex: Female

DRUGS (13)
  1. LAMOTRIGINE. [Suspect]
     Active Substance: LAMOTRIGINE
     Dosage: UNK, INCREASED DOSE
     Dates: start: 2013, end: 201312
  2. LORMETAZEPAM [Concomitant]
     Active Substance: LORMETAZEPAM
     Dosage: 2 MG, QD
     Dates: start: 201302
  3. ASENAPINE [Concomitant]
     Active Substance: ASENAPINE
     Indication: FEELING ABNORMAL
     Dosage: 5 MG, QD
     Dates: start: 201208, end: 201212
  4. LAMOTRIGINE. [Suspect]
     Active Substance: LAMOTRIGINE
     Indication: BIPOLAR DISORDER
     Dosage: 200 MG, QD
     Dates: start: 201302, end: 2013
  5. QUETIAPINE. [Concomitant]
     Active Substance: QUETIAPINE
     Dosage: 200 MG, QD
     Dates: start: 201306, end: 201312
  6. LORMETAZEPAM [Concomitant]
     Active Substance: LORMETAZEPAM
     Indication: INSOMNIA
     Dosage: 2 MG, AT NIGHT
     Dates: start: 201204
  7. LAMOTRIGINE. [Suspect]
     Active Substance: LAMOTRIGINE
     Indication: NERVOUSNESS
     Dosage: UP TO 200MG/DAY
     Dates: start: 201207
  8. LAMOTRIGINE. [Suspect]
     Active Substance: LAMOTRIGINE
     Dosage: 200 MG, QD
     Dates: start: 201312, end: 201405
  9. QUETIAPINE. [Concomitant]
     Active Substance: QUETIAPINE
     Dosage: 100 MG, QD
     Dates: start: 201302, end: 2013
  10. LAMOTRIGINE. [Suspect]
     Active Substance: LAMOTRIGINE
     Dosage: 100 MG, QD
     Dates: start: 2013, end: 2013
  11. QUETIAPINE. [Concomitant]
     Active Substance: QUETIAPINE
     Indication: INSOMNIA
     Dosage: 100 MG, AT BEDTIME
     Dates: start: 201208, end: 2012
  12. QUETIAPINE. [Concomitant]
     Active Substance: QUETIAPINE
     Indication: NERVOUSNESS
     Dosage: 100 MG, UNK
     Dates: start: 201212
  13. ASENAPINE [Concomitant]
     Active Substance: ASENAPINE
     Indication: IRRITABILITY
     Dosage: 10 MG, QD
     Dates: start: 201302, end: 2013

REACTIONS (3)
  - Cataplexy [Recovered/Resolved]
  - Fall [Recovered/Resolved]
  - Muscular weakness [Recovered/Resolved]

NARRATIVE: CASE EVENT DATE: 201208
